FAERS Safety Report 7656406-0 (Version None)
Quarter: 2011Q3

REPORT INFORMATION
  Report Type: 
  Country: None (occurrence: None)
  Receive Date: 20110801
  Receipt Date: 20110714
  Transmission Date: 20111222
  Serious: Yes (Hospitalization, Other)
  Sender: FDA-Public Use
  Company Number: 2011MA008424

PATIENT
  Age: 95 Year
  Sex: Female

DRUGS (2)
  1. LEVOTHYROXINE SODIUM [Concomitant]
  2. FERROUS SUL ELX [Suspect]
     Indication: IRON DEFICIENCY
     Dosage: 80 MG

REACTIONS (4)
  - MICROCYTIC ANAEMIA [None]
  - DRUG INTERACTION [None]
  - HYPOTHYROIDISM [None]
  - BLOOD THYROID STIMULATING HORMONE INCREASED [None]
